FAERS Safety Report 24103008 (Version 1)
Quarter: 2024Q3

REPORT INFORMATION
  Report Type: Report from Study
  Country: US (occurrence: None)
  Receive Date: 20240717
  Receipt Date: 20240717
  Transmission Date: 20241016
  Serious: Yes (Hospitalization)
  Sender: ASTRAZENECA
  Company Number: 2020SE11430

PATIENT
  Sex: Female

DRUGS (17)
  1. TAGRISSO [Suspect]
     Active Substance: OSIMERTINIB
     Indication: Lung neoplasm malignant
     Route: 048
     Dates: start: 20190103
  2. ELIQUIS [Concomitant]
     Active Substance: APIXABAN
  3. ZOCOR [Concomitant]
     Active Substance: SIMVASTATIN
  4. MORPHINE SULFATE [Concomitant]
     Active Substance: MORPHINE SULFATE
  5. METHIMAZOLE [Concomitant]
     Active Substance: METHIMAZOLE
  6. GABAPENTIN [Concomitant]
     Active Substance: GABAPENTIN
  7. FOLIC ACID [Concomitant]
     Active Substance: FOLIC ACID
  8. MOBIC [Concomitant]
     Active Substance: MELOXICAM
  9. DOCUSATE CALCIUM [Concomitant]
     Active Substance: DOCUSATE CALCIUM
  10. CIPROFLOXACIN HYDROCHLORIDE [Concomitant]
     Active Substance: CIPROFLOXACIN HYDROCHLORIDE
  11. VITAMIN B12 [Concomitant]
     Active Substance: CYANOCOBALAMIN
  12. PRILOSEC OTC [Concomitant]
     Active Substance: OMEPRAZOLE MAGNESIUM
  13. CALCIUM\CHOLECALCIFEROL [Concomitant]
     Active Substance: CALCIUM\CHOLECALCIFEROL
  14. VITAMIN D2 [Concomitant]
     Active Substance: ERGOCALCIFEROL
  15. METHOTREXATE [Concomitant]
     Active Substance: METHOTREXATE
  16. LACTOSE [Concomitant]
     Active Substance: LACTOSE
  17. STOOL SOFTENER + STIMULANT LAX [Concomitant]

REACTIONS (6)
  - Thrombosis [Unknown]
  - Blood urine present [Unknown]
  - Urinary tract infection [Unknown]
  - Nausea [Unknown]
  - Swelling [Unknown]
  - Feeding disorder [Unknown]
